FAERS Safety Report 10420677 (Version 1)
Quarter: 2014Q3

REPORT INFORMATION
  Report Type: Spontaneous
  Country: US (occurrence: None)
  Receive Date: 20140829
  Receipt Date: 20140829
  Transmission Date: 20150326
  Serious: Yes (Life-Threatening, Disabling)
  Sender: FDA-Public Use
  Company Number: None

PATIENT
  Age: 41 Year
  Sex: Female
  Weight: 47.63 kg

DRUGS (2)
  1. LEVETIRACETAM. [Suspect]
     Active Substance: LEVETIRACETAM
     Indication: EPILEPSY
     Dosage: MAINTENANCE MED FOR SEIZURES
     Route: 048
  2. LEVETIRACETAM. [Suspect]
     Active Substance: LEVETIRACETAM
     Indication: CONVULSION
     Dosage: MAINTENANCE MED FOR SEIZURES
     Route: 048

REACTIONS (4)
  - Disturbance in attention [None]
  - Abnormal behaviour [None]
  - Suicidal ideation [None]
  - Headache [None]

NARRATIVE: CASE EVENT DATE: 20140824
